FAERS Safety Report 6348839-X (Version None)
Quarter: 2009Q3

REPORT INFORMATION
  Report Type: 
  Country: None (occurrence: None)
  Receive Date: 20090911
  Receipt Date: 20090901
  Transmission Date: 20100115
  Serious: Yes (Other)
  Sender: FDA-Public Use
  Company Number: NO-PFIZER INC-2009264821

PATIENT
  Age: 55 Year

DRUGS (1)
  1. NORVASC [Suspect]

REACTIONS (1)
  - POLYNEUROPATHY [None]
